FAERS Safety Report 5455003-5 (Version None)
Quarter: 2007Q3

REPORT INFORMATION
  Report Type: 
  Country: None (occurrence: None)
  Receive Date: 20070913
  Receipt Date: 20070828
  Transmission Date: 20080115
  Serious: Yes (Hospitalization, Other)
  Sender: FDA-Public Use
  Company Number: 2007BI019048

PATIENT
  Age: 54 Year
  Sex: Female
  Weight: 62 kg

DRUGS (9)
  1. AVONEX [Suspect]
     Indication: MULTIPLE SCLEROSIS
     Dosage: QW; IM
     Route: 030
     Dates: start: 20040401, end: 20060401
  2. AMILORIDE HYDROCHLORIDE [Concomitant]
  3. BACLOFEN [Concomitant]
  4. AZATHIOPRINE [Concomitant]
  5. MULTIVITAMINIC VITA [Concomitant]
  6. FORT [Concomitant]
  7. SOMINEX [Concomitant]
  8. HYDROCHLOROTHIAZIDE [Concomitant]
  9. FLUNARIZINE [Concomitant]

REACTIONS (9)
  - ANAEMIA [None]
  - ASTHENIA [None]
  - DIZZINESS [None]
  - DYSPNOEA [None]
  - GAIT DISTURBANCE [None]
  - NEOPLASM MALIGNANT [None]
  - PAIN [None]
  - PYREXIA [None]
  - RENAL CELL CARCINOMA STAGE UNSPECIFIED [None]
